FAERS Safety Report 10100303 (Version 1)
Quarter: 2014Q2

REPORT INFORMATION
  Report Type: Spontaneous
  Country: US (occurrence: US)
  Receive Date: 20140423
  Receipt Date: 20140423
  Transmission Date: 20141212
  Serious: No
  Sender: FDA-Public Use
  Company Number: US-ENDO PHARMACEUTICALS INC.-CLON20130022

PATIENT
  Age: 6 Year
  Sex: Male
  Weight: 19.98 kg

DRUGS (1)
  1. CLONIDINE HCL TABLETS 0.1MG [Suspect]
     Indication: ATTENTION DEFICIT/HYPERACTIVITY DISORDER
     Dosage: 0.075 MG
     Route: 048
     Dates: start: 201312

REACTIONS (2)
  - Fatigue [Not Recovered/Not Resolved]
  - Agitation [Not Recovered/Not Resolved]
